FAERS Safety Report 9990226 (Version 1)
Quarter: 2014Q1

REPORT INFORMATION
  Report Type: Report from Study
  Country: US (occurrence: US)
  Receive Date: 20140310
  Receipt Date: 20140310
  Transmission Date: 20141002
  Serious: No
  Sender: FDA-Public Use
  Company Number: US-ABBVIE-13P-163-1131151-00

PATIENT
  Sex: Male

DRUGS (3)
  1. HUMIRA [Suspect]
     Indication: CROHN^S DISEASE
     Dates: start: 20130706
  2. PREDNISONE [Concomitant]
     Indication: CROHN^S DISEASE
     Route: 048
  3. PREDNISONE [Concomitant]
     Route: 048

REACTIONS (5)
  - Swelling [Recovering/Resolving]
  - Tenderness [Recovering/Resolving]
  - Infection [Recovering/Resolving]
  - Infection [Recovering/Resolving]
  - Staphylococcal infection [Recovering/Resolving]
